FAERS Safety Report 10213909 (Version 1)
Quarter: 2014Q2

REPORT INFORMATION
  Report Type: Spontaneous
  Country: US (occurrence: US)
  Receive Date: 20140603
  Receipt Date: 20140603
  Transmission Date: 20141212
  Serious: No
  Sender: FDA-Public Use
  Company Number: US-009507513-1406USA000617

PATIENT
  Sex: Female

DRUGS (3)
  1. ZETIA [Suspect]
     Dosage: 10 MG, QD
     Route: 048
     Dates: end: 20120511
  2. FENOFIBRATE [Suspect]
     Dosage: 145 MG, QD
     Route: 048
     Dates: end: 20120511
  3. NEXIUM [Suspect]
     Dosage: 40 MG, QD
     Dates: end: 20120511

REACTIONS (1)
  - Diarrhoea [Recovered/Resolved]
